FAERS Safety Report 17433318 (Version 1)
Quarter: 2020Q1

REPORT INFORMATION
  Report Type: Spontaneous
  Country: GB (occurrence: GB)
  Receive Date: 20200219
  Receipt Date: 20200219
  Transmission Date: 20200409
  Serious: Yes (Life-Threatening, Hospitalization, Disabling, Other)
  Sender: FDA-Public Use
  Company Number: GB-AUROBINDO-AUR-APL-2020-008504

PATIENT
  Age: 41 Year
  Sex: Male
  Weight: 68 kg

DRUGS (2)
  1. CEFUROXIME. [Suspect]
     Active Substance: CEFUROXIME
     Indication: ACUTE SINUSITIS
     Dosage: UNK
     Route: 048
     Dates: start: 20191220, end: 20191227
  2. AMOXICILLIN. [Suspect]
     Active Substance: AMOXICILLIN
     Indication: PRODUCT USED FOR UNKNOWN INDICATION
     Dosage: UNK
     Route: 065

REACTIONS (8)
  - Liver function test abnormal [Recovering/Resolving]
  - Dysphagia [Unknown]
  - Guillain-Barre syndrome [Recovering/Resolving]
  - Neuropathy peripheral [Unknown]
  - Facial paralysis [Unknown]
  - Nervous system disorder [Unknown]
  - Malignant hypertension [Recovered/Resolved]
  - Muscular weakness [Not Recovered/Not Resolved]
